FAERS Safety Report 16521687 (Version 1)
Quarter: 2019Q3

REPORT INFORMATION
  Report Type: Spontaneous
  Country: US (occurrence: US)
  Receive Date: 20190703
  Receipt Date: 20190703
  Transmission Date: 20191004
  Serious: Yes (Life-Threatening, Hospitalization)
  Sender: FDA-Public Use
  Company Number: US-ROCHE-2338009

PATIENT
  Age: 71 Year
  Sex: Male
  Weight: 77.6 kg

DRUGS (4)
  1. AVASTIN [Suspect]
     Active Substance: BEVACIZUMAB
     Indication: RECTAL CANCER
  2. ELOXATIN [Suspect]
     Active Substance: OXALIPLATIN
     Indication: METASTASES TO LIVER
  3. AVASTIN [Suspect]
     Active Substance: BEVACIZUMAB
     Indication: COLON CANCER
     Dosage: LAST TREATMENT WITH BEVACIZUMAB: 10/JUN/2019.
     Route: 042
     Dates: start: 20181008, end: 20190610
  4. ELOXATIN [Suspect]
     Active Substance: OXALIPLATIN
     Indication: COLON CANCER
     Route: 042
     Dates: start: 20181008, end: 20190610

REACTIONS (3)
  - Gastrointestinal haemorrhage [Recovering/Resolving]
  - Thrombocytopenia [Not Recovered/Not Resolved]
  - Blood loss anaemia [Recovering/Resolving]

NARRATIVE: CASE EVENT DATE: 20190611
